FAERS Safety Report 5840643-1 (Version None)
Quarter: 2008Q3

REPORT INFORMATION
  Report Type: 
  Country: None (occurrence: None)
  Receive Date: 20080811
  Receipt Date: 20080729
  Transmission Date: 20090109
  Serious: Yes (Other)
  Sender: FDA-Public Use
  Company Number: PHBS2008BR05322

PATIENT
  Age: 38 Year
  Sex: Male

DRUGS (4)
  1. NEORAL [Suspect]
     Indication: RENAL TRANSPLANT
  2. MYCOPHENOLATE MOFETIL [Suspect]
  3. AZATHIOPRINE [Suspect]
     Indication: RENAL TRANSPLANT
  4. PREDNISONE [Suspect]
     Indication: RENAL TRANSPLANT

REACTIONS (12)
  - ANAEMIA [None]
  - ANOREXIA [None]
  - BLOOD ALBUMIN DECREASED [None]
  - BLOOD CREATININE INCREASED [None]
  - DIARRHOEA [None]
  - HEPATOSPLENOMEGALY [None]
  - LEUKOPENIA [None]
  - NEPHROPATHY TOXIC [None]
  - PYREXIA [None]
  - THROMBOCYTOPENIA [None]
  - TRANSAMINASES INCREASED [None]
  - VISCERAL LEISHMANIASIS [None]
